FAERS Safety Report 8121898-X (Version None)
Quarter: 2012Q1

REPORT INFORMATION
  Report Type: 
  Country: None (occurrence: None)
  Receive Date: 20120206
  Receipt Date: 20120126
  Transmission Date: 20120608
  Serious: Yes (Other)
  Sender: FDA-Public Use
  Company Number: TPA2012A00109

PATIENT
  Age: 63 Year
  Sex: Male
  Weight: 78.9259 kg

DRUGS (13)
  1. SIMVASTATIN [Concomitant]
  2. ERGOCALCIFERAL (ERGOCALCIFEROL) [Concomitant]
  3. LIPITOR [Concomitant]
  4. FUROSEMIDE [Concomitant]
  5. ACTOS [Suspect]
     Dosage: 45 MG, 1 IN 1 D
  6. LASIX [Concomitant]
  7. LANTUS [Concomitant]
  8. ULTRACE (PARACETAMOL, TRAMADOL HYDROCHLORIDE) [Concomitant]
  9. AVAPRO [Concomitant]
  10. PANGESTYME (AMYLASE, PROTEASE, LIPASE) [Concomitant]
  11. GLIMEPIRIDE [Concomitant]
  12. LIPRAM (PANCREATIN) [Concomitant]
  13. HUMALOG [Concomitant]

REACTIONS (1)
  - BLADDER TRANSITIONAL CELL CARCINOMA STAGE I [None]
